FAERS Safety Report 8156656-3 (Version None)
Quarter: 2012Q1

REPORT INFORMATION
  Report Type: 
  Country: None (occurrence: None)
  Receive Date: 20120222
  Receipt Date: 20120210
  Transmission Date: 20120608
  Serious: Yes (Other)
  Sender: FDA-Public Use
  Company Number: US-UCBSA-050398

PATIENT
  Sex: Female

DRUGS (13)
  1. VENLAFAXINE [Concomitant]
     Dosage: DAILY
     Route: 048
  2. AMOXICILLIN [Concomitant]
     Dates: start: 20120106
  3. TRIAMCINOLONE [Concomitant]
     Dosage: TWO APPLICATIONS DAILY
  4. TRAMADOL HCL [Concomitant]
     Dosage: TID
     Route: 048
  5. HYDROCODONE BITARTRATE AND ACETAMINOPHEN [Concomitant]
     Indication: PAIN
     Dosage: 5/500MG Q 4H
  6. CIMZIA [Suspect]
     Indication: CROHN'S DISEASE
     Route: 058
     Dates: end: 20120124
  7. VITAMIN B-12 [Concomitant]
     Route: 030
  8. CIMZIA [Suspect]
     Dosage: UNKNOWN DOSE
     Route: 058
     Dates: start: 20100401
  9. IBUPROFEN TABLETS [Concomitant]
     Dosage: 200MG
  10. PROMETHAZINE [Concomitant]
     Indication: NAUSEA
     Dosage: TID
     Route: 048
  11. M.V.I. [Concomitant]
  12. TIZANIDINE HCL [Concomitant]
     Indication: MUSCLE SPASMS
     Dosage: Q6H
  13. CALCIUM [Concomitant]
     Dosage: DAILY

REACTIONS (6)
  - PSORIASIS [None]
  - PARAESTHESIA [None]
  - NIGHT SWEATS [None]
  - ARTHRALGIA [None]
  - HYPOAESTHESIA [None]
  - NEUROPATHY PERIPHERAL [None]
